FAERS Safety Report 6409175-6 (Version None)
Quarter: 2009Q4

REPORT INFORMATION
  Report Type: 
  Country: None (occurrence: None)
  Receive Date: 20091021
  Receipt Date: 20091013
  Transmission Date: 20100525
  Serious: Yes (Other)
  Sender: FDA-Public Use
  Company Number: PHEH2009US13601

PATIENT
  Sex: Female

DRUGS (1)
  1. ZOMETA [Suspect]
     Dosage: UNK

REACTIONS (6)
  - ANHEDONIA [None]
  - ANXIETY [None]
  - DISABILITY [None]
  - INJURY [None]
  - OSTEONECROSIS [None]
  - PAIN [None]
